FAERS Safety Report 25970914 (Version 1)
Quarter: 2025Q4

REPORT INFORMATION
  Report Type: Spontaneous
  Country: US (occurrence: US)
  Receive Date: 20251028
  Receipt Date: 20251028
  Transmission Date: 20260118
  Serious: No
  Sender: SANDOZ
  Company Number: US-SANDOZ-SDZ2025US079943

PATIENT
  Age: 9 Year
  Sex: Female

DRUGS (1)
  1. ALBUTEROL SULFATE [Suspect]
     Active Substance: ALBUTEROL SULFATE
     Indication: Asthma
     Dosage: 2 PUMPS EVERY 4-6 HOURS  AS NEEDED
     Route: 065
     Dates: start: 20251007

REACTIONS (4)
  - Circumstance or information capable of leading to device use error [Unknown]
  - Device delivery system issue [Unknown]
  - Device defective [Unknown]
  - Device malfunction [Unknown]

NARRATIVE: CASE EVENT DATE: 20251021
